FAERS Safety Report 5490544-6 (Version None)
Quarter: 2007Q4

REPORT INFORMATION
  Report Type: 
  Country: None (occurrence: None)
  Receive Date: 20071019
  Receipt Date: 20071016
  Transmission Date: 20080405
  Serious: Yes (Hospitalization, Other)
  Sender: FDA-Public Use
  Company Number: US-BRISTOL-MYERS SQUIBB COMPANY-13945019

PATIENT
  Age: 53 Year
  Sex: Male
  Weight: 83 kg

DRUGS (2)
  1. CISPLATIN [Suspect]
     Indication: TONSIL CANCER
     Dates: start: 20071003, end: 20071003
  2. RADIATION THERAPY [Suspect]
     Indication: TONSIL CANCER
     Dosage: 29 DOSAGE FORM = 58 GY
     Dates: start: 20070904, end: 20071010

REACTIONS (3)
  - NAUSEA [None]
  - ORAL PAIN [None]
  - VOMITING [None]
